FAERS Safety Report 5441853-8 (Version None)
Quarter: 2007Q3

REPORT INFORMATION
  Report Type: 
  Country: None (occurrence: None)
  Receive Date: 20070830
  Receipt Date: 20070830
  Transmission Date: 20080115
  Serious: Yes (Hospitalization)
  Sender: FDA-Public Use
  Company Number: None

PATIENT
  Age: 37 Year
  Sex: Female
  Weight: 58.4 kg

DRUGS (2)
  1. LISINOPRIL AND HYDROCHLOROTHIAZIDE [Suspect]
     Indication: HYPERTENSION
     Dosage: 10/12.5 MG DAILY PO
     Route: 048
  2. ORTHO TRI-CYCLEN [Concomitant]

REACTIONS (3)
  - ANGIOEDEMA [None]
  - FATIGUE [None]
  - LIP SWELLING [None]
